FAERS Safety Report 13118582 (Version 1)
Quarter: 2017Q1

REPORT INFORMATION
  Report Type: Spontaneous
  Country: US (occurrence: US)
  Receive Date: 20170116
  Receipt Date: 20170116
  Transmission Date: 20170428
  Serious: Yes (Other)
  Sender: FDA-Public Use
  Company Number: US-SA-2017SA004227

PATIENT
  Sex: Male

DRUGS (1)
  1. LANTUS [Suspect]
     Active Substance: INSULIN GLARGINE
     Indication: TYPE 2 DIABETES MELLITUS
     Route: 065
     Dates: start: 1996, end: 2007

REACTIONS (3)
  - Cardiac arrest [Unknown]
  - General physical health deterioration [Unknown]
  - Brain injury [Unknown]

NARRATIVE: CASE EVENT DATE: 2005
